FAERS Safety Report 9042795 (Version 1)
Quarter: 2013Q1

REPORT INFORMATION
  Report Type: Report from Study
  Country: US (occurrence: US)
  Receive Date: 20130129
  Receipt Date: 20130129
  Transmission Date: 20140127
  Serious: Yes (Other)
  Sender: FDA-Public Use
  Company Number: US-ABBOTT-13P-163-1038535-00

PATIENT
  Sex: Female
  Weight: 58.57 kg

DRUGS (7)
  1. HUMIRA [Suspect]
     Indication: RHEUMATOID ARTHRITIS
     Route: 058
     Dates: start: 2011
  2. COREG [Concomitant]
     Indication: BLOOD PRESSURE
  3. OXYBUTIN [Concomitant]
     Indication: INCONTINENCE
  4. UNKNOWN MEDICATION [Concomitant]
     Indication: GASTROOESOPHAGEAL REFLUX DISEASE
  5. ADVAIR [Concomitant]
     Indication: ASTHMA
  6. UNKNOWN INHALER [Concomitant]
     Indication: ASTHMA
  7. NICOTINE PATCH [Concomitant]
     Indication: EX-TOBACCO USER

REACTIONS (2)
  - Vision blurred [Recovering/Resolving]
  - Cataract [Recovered/Resolved]
